FAERS Safety Report 4968875-5 (Version None)
Quarter: 2006Q2

REPORT INFORMATION
  Report Type: 
  Country: None (occurrence: None)
  Receive Date: 20060411
  Receipt Date: 20050905
  Transmission Date: 20061013
  Serious: Yes (Life-Threatening, Hospitalization, Other)
  Sender: FDA-Public Use
  Company Number: HQWYE273207SEP05

PATIENT
  Sex: Female

DRUGS (11)
  1. ENBREL [Suspect]
     Indication: RHEUMATOID ARTHRITIS
     Route: 058
     Dates: start: 20050509, end: 20050830
  2. PREDONINE [Suspect]
     Indication: RHEUMATOID ARTHRITIS
     Dosage: 5 MG/DAY, TAB
     Route: 048
  3. EVISTA [Suspect]
     Route: 048
  4. RHEUMATREX [Concomitant]
     Route: 048
     Dates: start: 20030818
  5. SULFASALAZINE [Concomitant]
     Dates: end: 20050701
  6. FAMOTIDINE [Concomitant]
  7. ETODOLAC [Concomitant]
  8. VOLTAREN [Concomitant]
  9. FOLIAMIN [Concomitant]
  10. ASPARTATE CALCIUM [Concomitant]
  11. LIPITOR [Concomitant]

REACTIONS (4)
  - ANOREXIA [None]
  - DISSEMINATED INTRAVASCULAR COAGULATION [None]
  - PLATELET COUNT DECREASED [None]
  - SEPSIS [None]
